FAERS Safety Report 18593843 (Version 1)
Quarter: 2020Q4

REPORT INFORMATION
  Report Type: Spontaneous
  Country: DE (occurrence: DE)
  Receive Date: 20201209
  Receipt Date: 20201209
  Transmission Date: 20210114
  Serious: Yes (Life-Threatening, Hospitalization)
  Sender: FDA-Public Use
  Company Number: DE-TEVA-2020-DE-1855409

PATIENT
  Age: 48 Year
  Sex: Male
  Weight: 35 kg

DRUGS (8)
  1. ATROVENT [Concomitant]
     Active Substance: IPRATROPIUM BROMIDE
     Dosage: DAILY DOSE: 4 DF DOSAGE FORM EVERY DAYS 4 SEPARATED DOSES, UNIT DOSE: 4 DOSAGE FORMS
  2. VALSARTAN. [Concomitant]
     Active Substance: VALSARTAN
  3. SPIRONOLACTON [Concomitant]
     Active Substance: SPIRONOLACTONE
     Dosage: 50 MILLIGRAM DAILY;
  4. PREDNISOLON [Concomitant]
     Active Substance: PREDNISOLONE
     Dosage: 40 MILLIGRAM DAILY;
  5. SILDENAFIL. [Suspect]
     Active Substance: SILDENAFIL
     Indication: PULMONARY ARTERIAL HYPERTENSION
     Dosage: 10 MILLIGRAM DAILY;
     Route: 048
  6. METAMIZOL [Concomitant]
     Active Substance: METAMIZOLE SODIUM
     Dosage: 500 MG
  7. PIPERACILLIN /TAZOBACTAM 4.5 G [Concomitant]
     Dosage: DAILY DOSE: 3 DF DOSAGE FORM EVERY DAYS 3 SEPARATED DOSES,UNIT DOSE: 3 DOSAGE FORMS
  8. TORASEMID [Concomitant]
     Active Substance: TORSEMIDE
     Dosage: 20 MG

REACTIONS (3)
  - Angioedema [Not Recovered/Not Resolved]
  - Laryngeal oedema [Not Recovered/Not Resolved]
  - Anaphylactoid reaction [Not Recovered/Not Resolved]

NARRATIVE: CASE EVENT DATE: 20201017
